FAERS Safety Report 8722026 (Version 2)
Quarter: 2012Q4

REPORT INFORMATION
  Report Type: 
  Country: US (occurrence: US)
  Receive Date: 20120814
  Receipt Date: 20121207
  Transmission Date: 20130627
  Serious: Yes (Other)
  Sender: FDA-Public Use
  Company Number: US-PFIZER INC-2012193225

PATIENT
  Age: 39 Year
  Sex: Female

DRUGS (1)
  1. NEURONTIN [Suspect]
     Dosage: 300mg, at 3 every morning, 3 at mid day,  and 4 at every bedtime (10 total per day)

REACTIONS (4)
  - Brain neoplasm [Unknown]
  - Guillain-Barre syndrome [Unknown]
  - Impaired work ability [Unknown]
  - Gait disturbance [Unknown]
